FAERS Safety Report 6619380-1 (Version None)
Quarter: 2010Q1

REPORT INFORMATION
  Report Type: 
  Country: None (occurrence: None)
  Receive Date: 20100309
  Receipt Date: 20100222
  Transmission Date: 20100710
  Serious: Yes (Other)
  Sender: FDA-Public Use
  Company Number: SE-RANBAXY-2010RR-32030

PATIENT

DRUGS (1)
  1. ACICLOVIR RANBAXY TABLETS 400 MG [Suspect]
     Indication: ERYTHEMA MULTIFORME
     Dosage: 400 MG, UNK
     Dates: start: 20050701, end: 20100119

REACTIONS (8)
  - AGGRESSION [None]
  - ANXIETY [None]
  - CONFUSIONAL STATE [None]
  - DEPRESSION [None]
  - HALLUCINATION [None]
  - PSYCHOTIC BEHAVIOUR [None]
  - SUICIDAL IDEATION [None]
  - TREMOR [None]
